FAERS Safety Report 16670211 (Version 6)
Quarter: 2023Q2

REPORT INFORMATION
  Report Type: Report from Study
  Country: JP (occurrence: JP)
  Receive Date: 20190805
  Receipt Date: 20230605
  Transmission Date: 20230721
  Serious: Yes (Life-Threatening, Hospitalization)
  Sender: FDA-Public Use
  Company Number: JP-GILEAD-2019-0421125

PATIENT
  Age: 77 Year
  Sex: Female
  Weight: 55 kg

DRUGS (11)
  1. SOFOSBUVIR\VELPATASVIR [Suspect]
     Active Substance: SOFOSBUVIR\VELPATASVIR
     Indication: Hepatic cirrhosis
     Dosage: 1 DOSAGE FORM, QD
     Route: 048
     Dates: start: 20190521, end: 20190812
  2. SOFOSBUVIR\VELPATASVIR [Suspect]
     Active Substance: SOFOSBUVIR\VELPATASVIR
     Indication: Hepatitis C
  3. LACTULOSE [Concomitant]
     Active Substance: LACTULOSE
     Indication: Hepatic cirrhosis
     Dosage: UNK
     Route: 048
  4. SENNOSIDES A AND B [Concomitant]
     Active Substance: SENNOSIDES A AND B
     Indication: Hepatic cirrhosis
     Dosage: UNK
     Route: 048
     Dates: start: 20190810
  5. NEXIUM [Concomitant]
     Active Substance: ESOMEPRAZOLE MAGNESIUM
     Indication: Disease complication
     Dosage: UNK
     Route: 048
  6. FUROSEMIDE [Concomitant]
     Active Substance: FUROSEMIDE
     Indication: Hepatic cirrhosis
     Dosage: UNK
     Route: 048
  7. SPIRONOLACTONE [Concomitant]
     Active Substance: SPIRONOLACTONE
     Indication: Hepatic cirrhosis
     Dosage: UNK
     Route: 048
  8. POTASSIUM ASPARTATE [Concomitant]
     Active Substance: POTASSIUM ASPARTATE
     Indication: Hepatic cirrhosis
     Dosage: UNK
     Route: 048
  9. LIVACT [AMINO ACIDS NOS] [Concomitant]
     Indication: Hepatic cirrhosis
     Dosage: UNK
     Route: 048
  10. BISOPROLOL FUMARATE [Concomitant]
     Active Substance: BISOPROLOL FUMARATE
     Indication: Disease complication
     Dosage: UNK
     Route: 048
  11. FEBUXOSTAT [Concomitant]
     Active Substance: FEBUXOSTAT
     Indication: Disease complication
     Dosage: UNK
     Route: 048

REACTIONS (3)
  - Hepatic encephalopathy [Recovered/Resolved]
  - Renal impairment [Recovered/Resolved]
  - Diffuse large B-cell lymphoma [Not Recovered/Not Resolved]

NARRATIVE: CASE EVENT DATE: 20190716
